FAERS Safety Report 16126729 (Version 1)
Quarter: 2019Q1

REPORT INFORMATION
  Report Type: Spontaneous
  Country: FR (occurrence: FR)
  Receive Date: 20190328
  Receipt Date: 20190328
  Transmission Date: 20190418
  Serious: Yes (Hospitalization)
  Sender: FDA-Public Use
  Company Number: FR-SA-2019SA077983

PATIENT
  Age: 65 Year
  Sex: Male

DRUGS (7)
  1. LOVENOX [Suspect]
     Active Substance: ENOXAPARIN SODIUM
     Indication: IMMOBILISATION PROLONGED
     Dosage: 20000 IU, QD
     Route: 058
     Dates: start: 201902, end: 20190211
  2. BISOPROLOL FUMARATE. [Concomitant]
     Active Substance: BISOPROLOL FUMARATE
     Dosage: UNK UNK, UNK
  3. MOVICOL [Concomitant]
     Active Substance: POLYETHYLENE GLYCOL 3350\POTASSIUM CHLORIDE\SODIUM BICARBONATE\SODIUM CHLORIDE
     Dosage: UNK UNK, UNK
  4. VALSARTAN. [Concomitant]
     Active Substance: VALSARTAN
     Dosage: UNK UNK, UNK
  5. ACUPAN [Concomitant]
     Active Substance: NEFOPAM HYDROCHLORIDE
     Dosage: UNK UNK, UNK
  6. FLUINDIONE [Suspect]
     Active Substance: FLUINDIONE
     Indication: UNICUSPID AORTIC VALVE
     Dosage: 1.75 DF, QD
     Route: 048
     Dates: start: 2013, end: 20190211
  7. LIPANTHYL [Concomitant]
     Active Substance: FENOFIBRATE
     Dosage: UNK UNK, UNK

REACTIONS (2)
  - Anaemia [Recovering/Resolving]
  - International normalised ratio increased [Recovered/Resolved]

NARRATIVE: CASE EVENT DATE: 20190211
